FAERS Safety Report 8995892 (Version 1)
Quarter: 2013Q1

REPORT INFORMATION
  Report Type: Spontaneous
  Country: US (occurrence: US)
  Receive Date: 20130103
  Receipt Date: 20130103
  Transmission Date: 20140127
  Serious: Yes (Death, Hospitalization)
  Sender: FDA-Public Use
  Company Number: US-PFIZER INC-2013002232

PATIENT
  Age: 94 Year
  Sex: Female

DRUGS (13)
  1. VANCOMYCIN HCL [Suspect]
     Dosage: UNK
     Route: 041
  2. PROMACTA [Suspect]
     Indication: IDIOPATHIC THROMBOCYTOPENIC PURPURA
     Dosage: 50 MG, 1X/DAY
     Route: 048
     Dates: start: 20090407
  3. PROMACTA [Suspect]
     Dosage: 25 MG, ALTERNATE DAYS
     Route: 048
     Dates: end: 20120905
  4. PREGABALIN [Concomitant]
     Dosage: UNK
  5. ALPRAZOLAM [Concomitant]
     Dosage: UNK
  6. CARVEDILOL [Concomitant]
     Dosage: UNK
  7. ENALAPRIL [Concomitant]
     Dosage: UNK
  8. TYLENOL EXTRA-STRENGTH [Concomitant]
     Dosage: UNK
  9. SERTRALINE [Concomitant]
     Dosage: UNK
  10. METHENAMINE [Concomitant]
     Dosage: UNK
  11. CRANBERRY POTION [Concomitant]
  12. VITAMIN C [Concomitant]
     Dosage: UNK
  13. CULTURELLE [Concomitant]
     Dosage: UNK

REACTIONS (18)
  - Death [Fatal]
  - Urinary tract infection [Unknown]
  - Clostridial infection [Unknown]
  - Decreased appetite [Unknown]
  - Dysgeusia [Unknown]
  - Diarrhoea [Unknown]
  - Nausea [Unknown]
  - Vomiting [Unknown]
  - Myalgia [Unknown]
  - Platelet count decreased [Unknown]
  - Infection [Unknown]
  - Pyrexia [Unknown]
  - Fatigue [Unknown]
  - Asthenia [Unknown]
  - Disturbance in attention [Unknown]
  - Nosocomial infection [Unknown]
  - Hypersomnia [Unknown]
  - Drug administration error [Unknown]
